FAERS Safety Report 4946365-3 (Version None)
Quarter: 2006Q1

REPORT INFORMATION
  Report Type: 
  Country: None (occurrence: None)
  Receive Date: 20060317
  Receipt Date: 20060307
  Transmission Date: 20060701
  Serious: Yes (Hospitalization)
  Sender: FDA-Public Use
  Company Number: US-JNJFOC-20060302525

PATIENT
  Sex: Female
  Weight: 95.26 kg

DRUGS (4)
  1. ORTHO EVRA [Suspect]
     Indication: CONTRACEPTION
  2. ORTHO EVRA [Suspect]
  3. METFORMIN [Concomitant]
     Indication: HORMONE REPLACEMENT THERAPY
     Route: 048
     Dates: start: 20040201, end: 20050501
  4. SPIRONOLACTONE [Concomitant]
     Indication: HORMONE REPLACEMENT THERAPY
     Route: 048
     Dates: start: 20040201, end: 20050501

REACTIONS (4)
  - ALOPECIA [None]
  - ANAEMIA [None]
  - MENORRHAGIA [None]
  - UTERINE LEIOMYOMA [None]
